FAERS Safety Report 25456984 (Version 2)
Quarter: 2025Q3

REPORT INFORMATION
  Report Type: Spontaneous
  Country: US (occurrence: US)
  Receive Date: 20250619
  Receipt Date: 20250701
  Transmission Date: 20251020
  Serious: No
  Sender: SANOFI AVENTIS
  Company Number: US-SA-2025SA173469

PATIENT
  Age: 57 Year
  Sex: Male
  Weight: 104.55 kg

DRUGS (13)
  1. DUPIXENT [Suspect]
     Active Substance: DUPILUMAB
     Indication: Asthma
     Dosage: 300 MG, QOW
     Route: 058
     Dates: start: 20250525
  2. TRELEGY ELLIPTA [Concomitant]
     Active Substance: FLUTICASONE FUROATE\UMECLIDINIUM BROMIDE\VILANTEROL TRIFENATATE
  3. ALBUTEROL SULFATE [Concomitant]
     Active Substance: ALBUTEROL SULFATE
  4. SINGULAIR [Concomitant]
     Active Substance: MONTELUKAST SODIUM
  5. OXYCODONE [Concomitant]
     Active Substance: OXYCODONE
  6. ACETAMINOPHEN [Concomitant]
     Active Substance: ACETAMINOPHEN
  7. FARXIGA [Concomitant]
     Active Substance: DAPAGLIFLOZIN PROPANEDIOL
  8. LOSARTAN POTASSIUM ACCORD [Concomitant]
  9. ASPIRIN [Concomitant]
     Active Substance: ASPIRIN
  10. KETOROLAC TROMETHAMINE [Concomitant]
     Active Substance: KETOROLAC TROMETHAMINE
  11. NAPROXEN [Concomitant]
     Active Substance: NAPROXEN
  12. BENZONATATE [Concomitant]
     Active Substance: BENZONATATE
  13. CHANTIX [Concomitant]
     Active Substance: VARENICLINE TARTRATE

REACTIONS (2)
  - Dyspnoea [Unknown]
  - Product dose omission issue [Unknown]
